FAERS Safety Report 9887529 (Version 2)
Quarter: 2014Q1

REPORT INFORMATION
  Report Type: Spontaneous
  Country: AU (occurrence: AU)
  Receive Date: 20140211
  Receipt Date: 20140211
  Transmission Date: 20141002
  Serious: Yes (Other)
  Sender: FDA-Public Use
  Company Number: AU-ACCORD-021699

PATIENT
  Age: 30 Year
  Sex: Male

DRUGS (3)
  1. FLUOROURACIL [Suspect]
     Indication: COLORECTAL ADENOCARCINOMA
     Dosage: 5-FLUOROURACIL 400 MG/M2?5-FLUOROURACIL 2400 MG/M2 OVER 46 HOURS
  2. OXALIPLATIN [Concomitant]
     Indication: COLORECTAL ADENOCARCINOMA
  3. FOLINIC ACID [Concomitant]
     Indication: COLORECTAL ADENOCARCINOMA

REACTIONS (1)
  - Myocardial infarction [Recovered/Resolved]
